FAERS Safety Report 5490633-6 (Version None)
Quarter: 2007Q4

REPORT INFORMATION
  Report Type: 
  Country: None (occurrence: None)
  Receive Date: 20071019
  Receipt Date: 20071012
  Transmission Date: 20080405
  Serious: Yes (Other)
  Sender: FDA-Public Use
  Company Number: CA-ASTRAZENECA-2007UW23940

PATIENT
  Age: 59 Year
  Sex: Male

DRUGS (10)
  1. CRESTOR [Suspect]
     Route: 048
  2. ALTACE [Suspect]
     Route: 048
  3. ADALAT CC [Concomitant]
  4. ASPIRIN [Concomitant]
  5. CALCIUM [Concomitant]
     Route: 048
  6. VITAMIN D [Concomitant]
     Route: 048
  7. MULTI-VITAMINS [Concomitant]
     Route: 048
  8. DOXEPIN HYDROCHLORIDE [Concomitant]
  9. HYDRODIURIL [Concomitant]
     Route: 048
  10. PLAVIX [Concomitant]

REACTIONS (5)
  - ANGIOEDEMA [None]
  - CARDIAC DISORDER [None]
  - DYSPHONIA [None]
  - FACE OEDEMA [None]
  - TONGUE OEDEMA [None]
